FAERS Safety Report 7679478-6 (Version None)
Quarter: 2011Q3

REPORT INFORMATION
  Report Type: 
  Country: None (occurrence: None)
  Receive Date: 20110812
  Receipt Date: 20110812
  Transmission Date: 20111222
  Serious: Yes (Hospitalization, Disabling)
  Sender: FDA-Public Use
  Company Number: None

PATIENT
  Sex: Female
  Weight: 97.522 kg

DRUGS (3)
  1. CHANTIX [Concomitant]
     Dosage: 1
     Route: 048
  2. CHANTIX [Suspect]
     Indication: SUICIDAL IDEATION
     Dosage: 1
     Route: 048
     Dates: start: 20110712, end: 20110718
  3. CHANTIX [Suspect]
     Indication: DEPRESSION SUICIDAL
     Dosage: 1
     Route: 048
     Dates: start: 20110712, end: 20110718

REACTIONS (6)
  - AGITATION [None]
  - NIGHTMARE [None]
  - NAUSEA [None]
  - SUICIDAL IDEATION [None]
  - SYNCOPE [None]
  - HEADACHE [None]
